FAERS Safety Report 7446961-8 (Version None)
Quarter: 2011Q2

REPORT INFORMATION
  Report Type: 
  Country: None (occurrence: None)
  Receive Date: 20110429
  Receipt Date: 20101108
  Transmission Date: 20111010
  Serious: No
  Sender: FDA-Public Use
  Company Number: US-ASTRAZENECA-2010SE53267

PATIENT
  Age: 30233 Day
  Sex: Male

DRUGS (2)
  1. NEXIUM [Suspect]
     Indication: GASTROOESOPHAGEAL REFLUX DISEASE
     Route: 048
     Dates: start: 20101031
  2. BP MED [Concomitant]

REACTIONS (3)
  - APHAGIA [None]
  - ABDOMINAL DISCOMFORT [None]
  - NAUSEA [None]
